FAERS Safety Report 8785456 (Version 2)
Quarter: 2012Q4

REPORT INFORMATION
  Report Type: 
  Country: JP (occurrence: JP)
  Receive Date: 20120914
  Receipt Date: 20121026
  Transmission Date: 20130627
  Serious: Yes (Life-Threatening, Hospitalization, Disabling)
  Sender: FDA-Public Use
  Company Number: JP-B.I. PHARMACEUTICALS,INC./RIDGEFIELD-2012-BP-22110NB

PATIENT
  Age: 80 Year
  Sex: Female

DRUGS (8)
  1. PRAZAXA [Suspect]
     Indication: ATRIAL FIBRILLATION
     Dosage: 220 mg
     Route: 048
     Dates: start: 20120423, end: 20120829
  2. DONEPEZIL HYDROCHLORIDE [Concomitant]
     Indication: DEMENTIA ALZHEIMER^S TYPE
     Dosage: 5 mg
     Route: 048
     Dates: start: 20120710, end: 20120829
  3. SHIGMABITAN [Concomitant]
     Dosage: 40 mg
     Route: 048
     Dates: start: 20120417, end: 20120829
  4. OLMETEC [Concomitant]
     Route: 065
     Dates: start: 20060911, end: 20120829
  5. AMAZOLON [Concomitant]
     Route: 065
     Dates: start: 20120417, end: 20120829
  6. FEMARA [Concomitant]
     Route: 065
     Dates: start: 20120126, end: 20120829
  7. FOSAMAC 35MG [Concomitant]
     Route: 065
     Dates: start: 20120126, end: 20120829
  8. ATELEC [Concomitant]
     Route: 065
     Dates: start: 20060911, end: 20120829

REACTIONS (2)
  - Cerebral infarction [Recovered/Resolved with Sequelae]
  - Decreased appetite [Not Recovered/Not Resolved]
